FAERS Safety Report 20313000 (Version 1)
Quarter: 2022Q1

REPORT INFORMATION
  Report Type: Report from Study
  Country: NL (occurrence: NL)
  Receive Date: 20220108
  Receipt Date: 20220108
  Transmission Date: 20220423
  Serious: Yes (Death, Hospitalization, Other)
  Sender: FDA-Public Use
  Company Number: NL-MYLANLABS-2019M1060222

PATIENT
  Age: 73 Year
  Sex: Male

DRUGS (13)
  1. DICLOFENAC [Suspect]
     Active Substance: DICLOFENAC
     Indication: Product used for unknown indication
     Dosage: 50 MILLIGRAM, ONCE A DAY (THREE TIMES)
     Route: 065
  2. FENTANYL TRANSDERMAL SYSTEM [Interacting]
     Active Substance: FENTANYL
     Indication: Analgesic therapy
     Dosage: 37.5 MCG/HR, EVERY 3 DAYS
     Route: 003
  3. FENTANYL TRANSDERMAL SYSTEM [Interacting]
     Active Substance: FENTANYL
     Indication: Cancer pain
     Dosage: 25 MCG/HR, 1 DOSAGE FORM, EVERY OTHER 3 DAYS
     Route: 003
  4. FENTANYL TRANSDERMAL SYSTEM [Interacting]
     Active Substance: FENTANYL
     Dosage: 50 MCG/HR, 1 DF PER THREE DAYS, EVERY OTHER 3 DAY
     Route: 003
  5. FENTANYL TRANSDERMAL SYSTEM [Interacting]
     Active Substance: FENTANYL
     Dosage: 50 MICROGRAM/HOUR
     Route: 065
  6. FENTANYL TRANSDERMAL SYSTEM [Interacting]
     Active Substance: FENTANYL
     Dosage: 25 MICROGRAM/HOUR, ONCE EVERY THREE DAYS
     Route: 065
  7. FENTANYL [Interacting]
     Active Substance: FENTANYL
     Indication: Analgesic therapy
     Dosage: 50 MCG/HR, EVERY 3 DAYS
     Route: 003
  8. FENTANYL [Interacting]
     Active Substance: FENTANYL
     Dosage: 25 MCG/HR, EVERY 3 DAYS
     Route: 003
  9. MORPHINE [Suspect]
     Active Substance: MORPHINE
     Indication: Product used for unknown indication
     Dosage: UNK, (PCA PUMP)
     Route: 041
  10. MORPHINE [Suspect]
     Active Substance: MORPHINE
     Dosage: 2 MILLIGRAM (18X BOLUS DURING 25 HOURS)
     Route: 065
  11. ENZALUTAMIDE [Interacting]
     Active Substance: ENZALUTAMIDE
     Indication: Hormone-refractory prostate cancer
     Dosage: 160 MILLIGRAM, ONCE A DAY
     Route: 065
  12. ENZALUTAMIDE [Interacting]
     Active Substance: ENZALUTAMIDE
     Indication: Prostate cancer metastatic
  13. OXYCODONE [Concomitant]
     Active Substance: OXYCODONE
     Indication: Product used for unknown indication
     Dosage: 4 DOSAGE FORM, ONCE A DAY
     Route: 065

REACTIONS (7)
  - Metastases to bone [Fatal]
  - Spinal pain [Fatal]
  - Somnolence [Fatal]
  - Dizziness [Fatal]
  - Drug interaction [Unknown]
  - Drug level decreased [Unknown]
  - Disease progression [Unknown]
